FAERS Safety Report 12984727 (Version 2)
Quarter: 2016Q4

REPORT INFORMATION
  Report Type: Spontaneous
  Country: ES (occurrence: ES)
  Receive Date: 20161129
  Receipt Date: 20161223
  Transmission Date: 20170207
  Serious: Yes (Hospitalization)
  Sender: FDA-Public Use
  Company Number: ES-GILEAD-2016-0244943

PATIENT
  Age: 61 Year
  Sex: Male

DRUGS (3)
  1. ZYDELIG [Suspect]
     Active Substance: IDELALISIB
     Indication: CHRONIC LYMPHOCYTIC LEUKAEMIA
     Dosage: UNK
     Route: 065
  2. ZYDELIG [Suspect]
     Active Substance: IDELALISIB
     Dosage: 100 MG, BID
     Route: 065
     Dates: start: 201612
  3. ZYDELIG [Suspect]
     Active Substance: IDELALISIB
     Indication: CHROMOSOMAL DELETION
     Dosage: 100 MG, BID
     Route: 065

REACTIONS (2)
  - Herpes zoster [Recovered/Resolved]
  - Colitis [Recovered/Resolved]
